FAERS Safety Report 14700168 (Version 5)
Quarter: 2019Q1

REPORT INFORMATION
  Report Type: Report from Study
  Country: US (occurrence: US)
  Receive Date: 20180330
  Receipt Date: 20190315
  Transmission Date: 20190417
  Serious: Yes (Hospitalization, Other)
  Sender: FDA-Public Use
  Company Number: US-ASTELLAS-2018US015476

PATIENT
  Age: 92 Year
  Sex: Male

DRUGS (2)
  1. ENZALUTAMIDE [Suspect]
     Active Substance: ENZALUTAMIDE
     Indication: HORMONE-REFRACTORY PROSTATE CANCER
     Route: 048
  2. ENZALUTAMIDE [Suspect]
     Active Substance: ENZALUTAMIDE
     Indication: PROSTATE CANCER
     Dosage: 120 MG (3 CAPSULES) ONCE DAILY
     Route: 065
     Dates: start: 201610

REACTIONS (9)
  - Dehydration [Unknown]
  - Dehydration [Recovered/Resolved]
  - Fall [Recovering/Resolving]
  - Gout [Unknown]
  - Weight decreased [Unknown]
  - Haemoglobin decreased [Unknown]
  - Lower limb fracture [Recovering/Resolving]
  - Underdose [Unknown]
  - Hand fracture [Recovered/Resolved]

NARRATIVE: CASE EVENT DATE: 20181208
